FAERS Safety Report 16415434 (Version 12)
Quarter: 2021Q4

REPORT INFORMATION
  Report Type: Spontaneous
  Country: US (occurrence: US)
  Receive Date: 20190611
  Receipt Date: 20211112
  Transmission Date: 20220303
  Serious: Yes (Death, Other)
  Sender: FDA-Public Use
  Company Number: US-SA-2019SA152694

PATIENT
  Age: 56 Year
  Sex: Female

DRUGS (1)
  1. LUMIZYME [Suspect]
     Active Substance: ALGLUCOSIDASE ALFA
     Indication: Glycogen storage disease type II
     Dosage: 1500 MG, QOW
     Route: 041
     Dates: start: 20190528, end: 20211104

REACTIONS (11)
  - Death [Fatal]
  - Frequent bowel movements [Not Recovered/Not Resolved]
  - Abdominal discomfort [Unknown]
  - Malaise [Recovered/Resolved]
  - Feeling abnormal [Unknown]
  - Bowel movement irregularity [Recovered/Resolved]
  - Malaise [Unknown]
  - Urinary tract infection [Unknown]
  - Abdominal pain upper [Recovered/Resolved]
  - Diarrhoea [Unknown]
  - Vomiting [Unknown]

NARRATIVE: CASE EVENT DATE: 20190101
